FAERS Safety Report 18916953 (Version 1)
Quarter: 2021Q1

REPORT INFORMATION
  Report Type: Spontaneous
  Country: NL (occurrence: NL)
  Receive Date: 20210219
  Receipt Date: 20210219
  Transmission Date: 20210420
  Serious: Yes (Other)
  Sender: FDA-Public Use
  Company Number: NL-MYLANLABS-2021M1009852

PATIENT
  Sex: Female

DRUGS (3)
  1. ACETYLSALICYLZUUR [Concomitant]
     Active Substance: ASPIRIN
     Dosage: TABLET, 80 MG (MILLIGRAM)
  2. CALCI CHEW D3 [Concomitant]
     Active Substance: CALCIUM CARBONATE\CHOLECALCIFEROL
     Dosage: CHEWABLE TABLET, 1.25G (GRAM)/
  3. METOPROLOL. [Suspect]
     Active Substance: METOPROLOL
     Indication: PRODUCT USED FOR UNKNOWN INDICATION
     Dosage: 50 MILLIGRAM, QD,1 TABLET PER DAY
     Dates: start: 20201029, end: 20201031

REACTIONS (2)
  - Pulmonary embolism [Recovered/Resolved]
  - Coronary artery disease [Recovered/Resolved]
